FAERS Safety Report 5877999-X (Version None)
Quarter: 2008Q3

REPORT INFORMATION
  Report Type: 
  Country: None (occurrence: None)
  Receive Date: 20080909
  Receipt Date: 20080909
  Transmission Date: 20090109
  Serious: No
  Sender: FDA-Public Use
  Company Number: None

PATIENT
  Age: 85 Year
  Sex: Female

DRUGS (1)
  1. LEVAQUIN [Suspect]
     Dosage: 500 MG DAILY IV PIGGYBACK
     Route: 042
     Dates: start: 20080906, end: 20080906

REACTIONS (2)
  - DRUG HYPERSENSITIVITY [None]
  - INFUSION SITE ERYTHEMA [None]
